FAERS Safety Report 25958468 (Version 1)
Quarter: 2025Q4

REPORT INFORMATION
  Report Type: Spontaneous
  Country: US (occurrence: US)
  Receive Date: 20251024
  Receipt Date: 20251024
  Transmission Date: 20260118
  Serious: Yes (Other)
  Sender: MYLAN
  Company Number: US-MYLANLABS-2025M1088172

PATIENT
  Sex: Female

DRUGS (3)
  1. XANAX [Suspect]
     Active Substance: ALPRAZOLAM
     Indication: Panic attack
     Dosage: UNK (HALF TABLET)
  2. XANAX [Suspect]
     Active Substance: ALPRAZOLAM
     Indication: Anxiety
  3. WELLBUTRIN [Concomitant]
     Active Substance: BUPROPION HYDROCHLORIDE
     Dosage: UNK

REACTIONS (10)
  - Drug dependence [Unknown]
  - Head discomfort [Unknown]
  - Illness [Unknown]
  - Nausea [Unknown]
  - Tinnitus [Unknown]
  - Drug ineffective [Unknown]
  - Wrong technique in product usage process [Unknown]
  - Product use issue [Unknown]
  - Product substitution issue [Unknown]
  - Product physical issue [Unknown]
